FAERS Safety Report 21678570 (Version 1)
Quarter: 2022Q4

REPORT INFORMATION
  Report Type: Spontaneous
  Country: US (occurrence: US)
  Receive Date: 20221203
  Receipt Date: 20221203
  Transmission Date: 20230113
  Serious: No
  Sender: FDA-Public Use
  Company Number: US-AMGEN-USASP2022203054

PATIENT
  Sex: Male

DRUGS (8)
  1. REPATHA [Suspect]
     Active Substance: EVOLOCUMAB
     Indication: Blood cholesterol abnormal
     Dosage: 420 MILLIGRAM, QMO
     Route: 058
  2. AMLODIPINE [Concomitant]
     Active Substance: AMLODIPINE BESYLATE
     Dosage: 2.5 MILLIGRAM
  3. LORAZEPAM [Concomitant]
     Active Substance: LORAZEPAM
     Dosage: 1MG IN AM AND 1MG IN PM
  4. IRBESARTAN [Concomitant]
     Active Substance: IRBESARTAN
     Dosage: 150 MILLIGRAM
  5. DULOXETINE [Concomitant]
     Active Substance: DULOXETINE
  6. CIALIS [Concomitant]
     Active Substance: TADALAFIL
     Dosage: 5 MILLIGRAM
  7. FISH OIL [Concomitant]
     Active Substance: FISH OIL
  8. GARLIC [Concomitant]
     Active Substance: GARLIC

REACTIONS (3)
  - Arthralgia [Recovered/Resolved]
  - Joint stiffness [Recovered/Resolved]
  - Inappropriate schedule of product administration [Unknown]
